FAERS Safety Report 11897074 (Version 2)
Quarter: 2016Q2

REPORT INFORMATION
  Report Type: Spontaneous
  Country: HR (occurrence: HR)
  Receive Date: 20160107
  Receipt Date: 20160414
  Transmission Date: 20160815
  Serious: Yes (Hospitalization)
  Sender: FDA-Public Use
  Company Number: PHHY2015HR170671

PATIENT
  Sex: Male

DRUGS (5)
  1. DEPAKINE CHRONO [Suspect]
     Active Substance: VALPROATE SODIUM
     Indication: MANIA
     Dosage: 500 MG
     Route: 065
  2. RISPOLEPT [Suspect]
     Active Substance: RISPERIDONE
     Indication: MANIA
     Route: 048
     Dates: start: 201011, end: 201206
  3. PROMAZIN [Suspect]
     Active Substance: PROMAZINE
     Indication: MANIA
     Dosage: 25 MG, UNK
     Route: 065
  4. SANVAL [Suspect]
     Active Substance: ZOLPIDEM TARTRATE
     Indication: MANIA
     Dosage: 10 MG
     Route: 048
  5. DEPAKINE CHRONO [Suspect]
     Active Substance: VALPROATE SODIUM
     Route: 065

REACTIONS (7)
  - Hypervigilance [Recovered/Resolved]
  - Treatment noncompliance [Unknown]
  - Energy increased [Recovered/Resolved]
  - Thinking abnormal [Recovered/Resolved]
  - Hostility [Recovered/Resolved]
  - Restlessness [Recovered/Resolved]
  - Family stress [Recovered/Resolved]

NARRATIVE: CASE EVENT DATE: 2012
